FAERS Safety Report 14686834 (Version 1)
Quarter: 2018Q1

REPORT INFORMATION
  Report Type: Spontaneous
  Country: US (occurrence: US)
  Receive Date: 20180327
  Receipt Date: 20180327
  Transmission Date: 20180509
  Serious: No
  Sender: FDA-Public Use
  Company Number: US-PFIZER INC-2018125008

PATIENT
  Age: 36 Year
  Sex: Female

DRUGS (2)
  1. PEGVISOMANT [Suspect]
     Active Substance: PEGVISOMANT
     Dosage: UNK
     Dates: start: 20120323
  2. SANDOSTATIN LAR DEPOT [Concomitant]
     Active Substance: OCTREOTIDE ACETATE
     Dosage: UNK

REACTIONS (1)
  - Hepatic enzyme increased [Recovered/Resolved]
